FAERS Safety Report 4499663-4 (Version None)
Quarter: 2004Q4

REPORT INFORMATION
  Report Type: 
  Country: None (occurrence: None)
  Receive Date: 20041112
  Receipt Date: 20041102
  Transmission Date: 20050328
  Serious: Yes (Life-Threatening, Hospitalization)
  Sender: FDA-Public Use
  Company Number: JP-ABBOTT-04P-087-0279711-00

PATIENT
  Sex: Female

DRUGS (11)
  1. CLARITHROMYCIN [Suspect]
     Indication: HELICOBACTER INFECTION
     Route: 048
     Dates: start: 20040917, end: 20040923
  2. CLARITHROMYCIN [Suspect]
     Indication: GASTRIC ULCER
     Route: 048
     Dates: start: 20040924, end: 20040924
  3. LANSOPRAZOLE [Suspect]
     Indication: HELICOBACTER INFECTION
     Route: 048
     Dates: start: 20040917, end: 20040924
  4. LANSOPRAZOLE [Suspect]
     Indication: GASTRIC ULCER
     Route: 048
     Dates: start: 20040917, end: 20040923
  5. AMOXICILLIN [Suspect]
     Indication: HELICOBACTER INFECTION
     Route: 048
     Dates: start: 20040917, end: 20040923
  6. AMOXICILLIN [Suspect]
     Indication: GASTRIC ULCER
     Route: 048
     Dates: start: 20040924, end: 20040924
  7. PROTECADIN [Suspect]
     Indication: ABDOMINAL PAIN UPPER
     Route: 048
     Dates: start: 20040911, end: 20040916
  8. REBAMIPIDE [Suspect]
     Indication: ABDOMINAL PAIN UPPER
     Route: 048
     Dates: start: 20040911, end: 20040916
  9. HAKUBI C [Concomitant]
     Indication: FATIGUE
     Route: 048
     Dates: start: 20030901, end: 20041012
  10. REPULSE TAF [Concomitant]
     Indication: FATIGUE
     Route: 048
     Dates: start: 20030901, end: 20041012
  11. OXETHAZAINE [Concomitant]
     Dates: start: 20040911

REACTIONS (2)
  - AGRANULOCYTOSIS [None]
  - THROMBOCYTOPENIA [None]
